FAERS Safety Report 9235042 (Version 1)
Quarter: 2013Q2

REPORT INFORMATION
  Report Type: Report from Study
  Country: US (occurrence: US)
  Receive Date: 20130416
  Receipt Date: 20130416
  Transmission Date: 20140414
  Serious: Yes (Other)
  Sender: FDA-Public Use
  Company Number: US-BAXTER-2013BAX013872

PATIENT
  Age: 47 Year
  Sex: Female
  Weight: 57.73 kg

DRUGS (8)
  1. GAMMAGARD LIQUID [Suspect]
     Indication: IMMUNODEFICIENCY COMMON VARIABLE
     Route: 058
     Dates: start: 201212
  2. GAMMAGARD LIQUID [Suspect]
     Route: 058
     Dates: start: 20130408
  3. SMZ-TMP [Concomitant]
     Indication: IMMUNODEFICIENCY COMMON VARIABLE
     Route: 048
  4. TOBRADEX [Concomitant]
     Indication: HYPERSENSITIVITY
  5. ALENDRONATE [Concomitant]
     Indication: PRODUCT USED FOR UNKNOWN INDICATION
  6. BENADRYL [Concomitant]
     Indication: PREMEDICATION
     Route: 048
  7. BENADRYL [Concomitant]
     Indication: HYPERSENSITIVITY
  8. TYLENOL [Concomitant]
     Indication: PREMEDICATION
     Route: 048

REACTIONS (11)
  - Influenza [Recovered/Resolved]
  - Sinusitis [Recovered/Resolved]
  - Pharyngitis streptococcal [Recovered/Resolved]
  - Staphylococcal infection [Recovered/Resolved]
  - Lymphadenopathy [Not Recovered/Not Resolved]
  - Abdominal pain upper [Recovered/Resolved]
  - Muscle spasms [Recovered/Resolved]
  - Headache [Recovered/Resolved]
  - Muscle spasms [Recovered/Resolved]
  - Nausea [Recovered/Resolved]
  - Pyrexia [Recovered/Resolved]
